FAERS Safety Report 18475254 (Version 9)
Quarter: 2021Q3

REPORT INFORMATION
  Report Type: Report from Study
  Country: US (occurrence: US)
  Receive Date: 20201106
  Receipt Date: 20210928
  Transmission Date: 20211014
  Serious: Yes (Hospitalization)
  Sender: FDA-Public Use
  Company Number: NVSC2020US298674

PATIENT
  Age: 80 Year
  Sex: Male

DRUGS (2)
  1. ENTRESTO [Suspect]
     Active Substance: SACUBITRIL\VALSARTAN
     Indication: CARDIAC FAILURE
     Dosage: 50 MG, BID (24/26 MG)
     Route: 048
     Dates: start: 20201014
  2. ENTRESTO [Suspect]
     Active Substance: SACUBITRIL\VALSARTAN
     Dosage: UNK
     Route: 048
     Dates: start: 202010

REACTIONS (11)
  - Weight decreased [Recovering/Resolving]
  - Peripheral swelling [Unknown]
  - Peripheral swelling [Recovered/Resolved]
  - Cardiac failure [Unknown]
  - Blood count abnormal [Unknown]
  - Weight increased [Unknown]
  - Renal impairment [Unknown]
  - Chest pain [Unknown]
  - Hernia [Unknown]
  - Skin ulcer [Unknown]
  - Anaemia [Unknown]

NARRATIVE: CASE EVENT DATE: 20201104
